FAERS Safety Report 13157581 (Version 1)
Quarter: 2017Q1

REPORT INFORMATION
  Report Type: Spontaneous
  Country: US (occurrence: US)
  Receive Date: 20170126
  Receipt Date: 20170126
  Transmission Date: 20170428
  Serious: Yes (Hospitalization)
  Sender: FDA-Public Use
  Company Number: None

PATIENT
  Age: 59 Year
  Sex: Male
  Weight: 112.5 kg

DRUGS (1)
  1. HYDROCHLOROTHIAZIDE/LISINOPRIL [Suspect]
     Active Substance: HYDROCHLOROTHIAZIDE\LISINOPRIL
     Indication: HYPERTENSION
     Dosage: DOSE - 12.5/10MG
     Route: 048
     Dates: start: 20101209, end: 20160626

REACTIONS (5)
  - Swelling face [None]
  - Hypoaesthesia [None]
  - Lip swelling [None]
  - Angioedema [None]
  - Paraesthesia [None]

NARRATIVE: CASE EVENT DATE: 20160627
